FAERS Safety Report 6311210-0 (Version None)
Quarter: 2009Q3

REPORT INFORMATION
  Report Type: 
  Country: None (occurrence: None)
  Receive Date: 20090817
  Receipt Date: 20090515
  Transmission Date: 20100115
  Serious: No
  Sender: FDA-Public Use
  Company Number: US-BAYER-200717111NA

PATIENT
  Age: 42 Year
  Sex: Female
  Weight: 109 kg

DRUGS (4)
  1. YAZ [Suspect]
     Indication: MENSTRUATION IRREGULAR
     Dosage: ONE TABLET PER DAY
     Route: 048
     Dates: start: 20071101
  2. ATENOLOL [Concomitant]
  3. HYDROCHLOROTHIAZIDE [Concomitant]
  4. OTC IRON PILL [Concomitant]

REACTIONS (5)
  - ABNORMAL WITHDRAWAL BLEEDING [None]
  - MENORRHAGIA [None]
  - METRORRHAGIA [None]
  - NO ADVERSE EVENT [None]
  - VAGINAL HAEMORRHAGE [None]
